FAERS Safety Report 14317109 (Version 2)
Quarter: 2017Q4

REPORT INFORMATION
  Report Type: Report from Study
  Country: US (occurrence: US)
  Receive Date: 20171222
  Receipt Date: 20171225
  Transmission Date: 20180321
  Serious: Yes (Death)
  Sender: FDA-Public Use
  Company Number: US-ROCHE-2045148

PATIENT
  Age: 73 Year
  Sex: Female

DRUGS (1)
  1. LUCENTIS [Suspect]
     Active Substance: RANIBIZUMAB
     Indication: AGE-RELATED MACULAR DEGENERATION
     Route: 065
     Dates: start: 20170912

REACTIONS (1)
  - Death [Fatal]

NARRATIVE: CASE EVENT DATE: 20171208
